FAERS Safety Report 6997307-0 (Version None)
Quarter: 2010Q3

REPORT INFORMATION
  Report Type: 
  Country: None (occurrence: None)
  Receive Date: 20100918
  Receipt Date: 20091007
  Transmission Date: 20110219
  Serious: No
  Sender: FDA-Public Use
  Company Number: US-WYE-H11475809

PATIENT
  Sex: Female
  Weight: 64.01 kg

DRUGS (3)
  1. PRISTIQ [Suspect]
     Indication: DEPRESSION
     Route: 048
     Dates: start: 20091007
  2. ZOLOFT [Suspect]
     Indication: DEPRESSION
     Dosage: 100 MG FROM UNKNOWN DATE AND DECREASED TO 50 MG ON 07-OCT-2009
     Route: 048
  3. TAPAZOLE [Concomitant]
     Indication: HYPERTHYROIDISM
     Dosage: UNKNOWN

REACTIONS (2)
  - HEART RATE INCREASED [None]
  - PALPITATIONS [None]
